FAERS Safety Report 4383647-0 (Version None)
Quarter: 2004Q2

REPORT INFORMATION
  Report Type: 
  Country: None (occurrence: None)
  Receive Date: 20040623
  Receipt Date: 20040616
  Transmission Date: 20050107
  Serious: Yes (Other)
  Sender: FDA-Public Use
  Company Number: CHROB-S-20040004

PATIENT
  Age: 77 Year
  Sex: Female

DRUGS (2)
  1. NAVELBINE [Suspect]
     Indication: DRUG USE FOR UNKNOWN INDICATION
     Route: 042
     Dates: start: 20030909, end: 20031201
  2. NOVANTRONE [Suspect]
     Indication: DRUG USE FOR UNKNOWN INDICATION
     Route: 042
     Dates: start: 20031028, end: 20031201

REACTIONS (4)
  - BACTERIAL INFECTION [None]
  - LUNG DISORDER [None]
  - PLEURISY [None]
  - PNEUMONITIS [None]
